FAERS Safety Report 6942674 (Version 3)
Quarter: 2014Q3

REPORT INFORMATION
  Report Type: Spontaneous
  Country: FR (occurrence: FR)
  Receive Date: 20090317
  Receipt Date: 20140703
  Transmission Date: 20150326
  Serious: Yes (Death, Other)
  Sender: FDA-Public Use
  Company Number: FR-ELI_LILLY_AND_COMPANY-FR200903002750

PATIENT
  Age: 58 Year
  Sex: Female

DRUGS (3)
  1. CDDP [Concomitant]
     Active Substance: CISPLATIN
     Indication: LUNG NEOPLASM MALIGNANT
     Dosage: 100 MG/M2, ON DAY 15
     Dates: start: 199702
  2. GEMZAR [Suspect]
     Active Substance: GEMCITABINE HYDROCHLORIDE
     Indication: LUNG NEOPLASM MALIGNANT
     Dosage: 1000 MG/M2, ON DAY 1, 8 AND 15
     Dates: start: 19970217
  3. CDDP [Concomitant]
     Active Substance: CISPLATIN
     Dosage: DOSE DECREASED, ON DAY 15

REACTIONS (3)
  - Metastases to bone [Fatal]
  - Myositis [Recovering/Resolving]
  - Drug tolerance decreased [Unknown]

NARRATIVE: CASE EVENT DATE: 1997
